FAERS Safety Report 12089285 (Version 1)
Quarter: 2016Q1

REPORT INFORMATION
  Report Type: Spontaneous
  Country: TR (occurrence: TR)
  Receive Date: 20160218
  Receipt Date: 20160218
  Transmission Date: 20160526
  Serious: Yes (Hospitalization, Other)
  Sender: FDA-Public Use
  Company Number: TR-WATSON-2016-03451

PATIENT
  Age: 37 Year
  Sex: Male

DRUGS (2)
  1. CIPRO [Concomitant]
     Active Substance: CIPROFLOXACIN HYDROCHLORIDE
     Indication: PRODUCT USED FOR UNKNOWN INDICATION
     Dosage: UNK
     Route: 048
     Dates: start: 20160204, end: 20160209
  2. TETRADOX [Suspect]
     Active Substance: DOXYCYCLINE HYDROCHLORIDE
     Indication: URINARY TRACT INFECTION
     Dosage: 100 MG, DAILY
     Route: 048
     Dates: start: 20160204

REACTIONS (2)
  - Oesophagitis [Not Recovered/Not Resolved]
  - Hypophagia [Unknown]

NARRATIVE: CASE EVENT DATE: 20160204
